FAERS Safety Report 8974906 (Version 2)
Quarter: 2013Q1

REPORT INFORMATION
  Report Type: Spontaneous
  Country: DK (occurrence: DK)
  Receive Date: 20121219
  Receipt Date: 20130222
  Transmission Date: 20140127
  Serious: Yes (Hospitalization)
  Sender: FDA-Public Use
  Company Number: DK-BAXTER-2012BAX027473

PATIENT
  Sex: Male

DRUGS (4)
  1. GAMMAGARD S/D [Suspect]
     Indication: PROPHYLAXIS
     Route: 065
     Dates: start: 19970303
  2. DITEBOOSTER [Suspect]
     Indication: PROPHYLAXIS
     Route: 065
     Dates: start: 200403
  3. HAVRIX [Suspect]
     Indication: PROPHYLAXIS
     Route: 065
     Dates: start: 200403
  4. HAVRIX [Suspect]
     Route: 065
     Dates: start: 20041210

REACTIONS (4)
  - Immune system disorder [Not Recovered/Not Resolved]
  - Mucous membrane disorder [Not Recovered/Not Resolved]
  - Abdominal pain upper [Not Recovered/Not Resolved]
  - Malaise [Not Recovered/Not Resolved]
